FAERS Safety Report 5506251-7 (Version None)
Quarter: 2007Q4

REPORT INFORMATION
  Report Type: 
  Country: None (occurrence: None)
  Receive Date: 20071105
  Receipt Date: 20071025
  Transmission Date: 20080405
  Serious: Yes (Hospitalization)
  Sender: FDA-Public Use
  Company Number: US-JNJFOC-20071100048

PATIENT
  Sex: Female
  Weight: 58.06 kg

DRUGS (1)
  1. DURAGESIC-100 [Suspect]
     Indication: PAIN
     Dosage: 1X 75UG/HR PLUS 1X 50UG/HR PATCHES APPLIED TOGETHER
     Route: 062

REACTIONS (7)
  - ARTHRALGIA [None]
  - CEREBRAL HAEMORRHAGE [None]
  - FALL [None]
  - FEELING ABNORMAL [None]
  - INCORRECT DRUG ADMINISTRATION DURATION [None]
  - VERTIGO [None]
  - WRONG TECHNIQUE IN DRUG USAGE PROCESS [None]
